FAERS Safety Report 11747566 (Version 2)
Quarter: 2015Q4

REPORT INFORMATION
  Report Type: Spontaneous
  Country: US (occurrence: US)
  Receive Date: 20151117
  Receipt Date: 20151120
  Transmission Date: 20160304
  Serious: Yes (Hospitalization)
  Sender: FDA-Public Use
  Company Number: US-SA-2015SA179984

PATIENT
  Age: 34 Year
  Sex: Male

DRUGS (4)
  1. ISONIAZID. [Suspect]
     Active Substance: ISONIAZID
     Indication: DISSEMINATED TUBERCULOSIS
     Route: 065
  2. ETHAMBUTOL [Suspect]
     Active Substance: ETHAMBUTOL HYDROCHLORIDE
     Indication: DISSEMINATED TUBERCULOSIS
     Route: 065
  3. PYRAZINAMIDE. [Suspect]
     Active Substance: PYRAZINAMIDE
     Indication: DISSEMINATED TUBERCULOSIS
     Route: 065
  4. RIFAMPICIN [Suspect]
     Active Substance: RIFAMPIN
     Indication: DISSEMINATED TUBERCULOSIS
     Route: 065

REACTIONS (9)
  - Tuberculoma of central nervous system [Recovering/Resolving]
  - Computerised tomogram abnormal [Unknown]
  - Protein total increased [Unknown]
  - Treatment failure [Unknown]
  - Drug resistance [Unknown]
  - Seizure [Recovered/Resolved]
  - Mental status changes [Recovering/Resolving]
  - White blood cell count abnormal [Unknown]
  - Blood glucose decreased [Unknown]
